FAERS Safety Report 4393113-4 (Version None)
Quarter: 2004Q3

REPORT INFORMATION
  Report Type: 
  Country: None (occurrence: None)
  Receive Date: 20040706
  Receipt Date: 20040623
  Transmission Date: 20050211
  Serious: Yes (Life-Threatening, Hospitalization)
  Sender: FDA-Public Use
  Company Number: 200411957EU

PATIENT
  Age: 35 Year
  Sex: Female

DRUGS (5)
  1. KETEK [Suspect]
     Indication: BRONCHITIS ACUTE
     Route: 048
     Dates: start: 20040105, end: 20040109
  2. LANOXIN [Concomitant]
  3. ZESTRIL [Concomitant]
  4. KREDEX [Concomitant]
  5. ALDACTONE [Concomitant]

REACTIONS (3)
  - CIRCULATORY COLLAPSE [None]
  - TREATMENT NONCOMPLIANCE [None]
  - VENTRICULAR FIBRILLATION [None]
